FAERS Safety Report 4819448-6 (Version None)
Quarter: 2005Q4

REPORT INFORMATION
  Report Type: 
  Country: None (occurrence: None)
  Receive Date: 20051103
  Receipt Date: 20051025
  Transmission Date: 20060501
  Serious: Yes (Hospitalization)
  Sender: FDA-Public Use
  Company Number: JP-JNJFOC-20051004311

PATIENT
  Age: 52 Year
  Sex: Male

DRUGS (1)
  1. ITRIZOLE [Suspect]
     Indication: NAIL TINEA
     Route: 048

REACTIONS (7)
  - ALCOHOL USE [None]
  - DRUG ADMINISTRATION ERROR [None]
  - DRUG ERUPTION [None]
  - HYPERSENSITIVITY [None]
  - LIVER DISORDER [None]
  - LYMPHADENOPATHY [None]
  - PYREXIA [None]
